FAERS Safety Report 6808251-3 (Version None)
Quarter: 2010Q2

REPORT INFORMATION
  Report Type: 
  Country: None (occurrence: None)
  Receive Date: 20100629
  Receipt Date: 20090421
  Transmission Date: 20101027
  Serious: No
  Sender: FDA-Public Use
  Company Number: US-PFIZER INC-2009202506

PATIENT
  Sex: Male
  Weight: 117.9 kg

DRUGS (3)
  1. VIAGRA [Suspect]
     Dosage: UNK
     Dates: start: 20090316, end: 20090316
  2. LEVOTHYROXINE [Concomitant]
     Indication: THYROID DISORDER
     Dosage: UNK
  3. PROSCAR [Concomitant]
     Indication: PROSTATOMEGALY
     Dosage: UNK

REACTIONS (2)
  - DRUG INEFFECTIVE [None]
  - FLUSHING [None]
